FAERS Safety Report 8368315-2 (Version None)
Quarter: 2012Q2

REPORT INFORMATION
  Report Type: 
  Country: None (occurrence: None)
  Receive Date: 20120517
  Receipt Date: 20120424
  Transmission Date: 20120825
  Serious: Yes (Hospitalization)
  Sender: FDA-Public Use
  Company Number: PHHY2012AU021310

PATIENT
  Age: 57 Year
  Sex: Male

DRUGS (2)
  1. GILENYA [Suspect]
     Dosage: UNK
     Route: 048
     Dates: start: 20111206, end: 20120312
  2. TYSABRI [Suspect]
     Dosage: UNK
     Route: 042
     Dates: start: 20070101, end: 20111026

REACTIONS (7)
  - VISUAL IMPAIRMENT [None]
  - GAIT DISTURBANCE [None]
  - PROGRESSIVE MULTIFOCAL LEUKOENCEPHALOPATHY [None]
  - MALAISE [None]
  - CENTRAL NERVOUS SYSTEM LESION [None]
  - MUSCULAR WEAKNESS [None]
  - ANXIETY [None]
